FAERS Safety Report 9684935 (Version 1)
Quarter: 2013Q4

REPORT INFORMATION
  Report Type: Spontaneous
  Country: BR (occurrence: BR)
  Receive Date: 20131113
  Receipt Date: 20131113
  Transmission Date: 20140711
  Serious: Yes (Hospitalization)
  Sender: FDA-Public Use
  Company Number: BR-BIOGENIDEC-2013BI108646

PATIENT
  Age: 66 Year
  Sex: Female

DRUGS (4)
  1. TYSABRI [Suspect]
     Indication: MULTIPLE SCLEROSIS
     Route: 042
     Dates: start: 20110913
  2. INDAPEN [Concomitant]
     Indication: HYPERTENSION
  3. LEXOTAN [Concomitant]
     Indication: SLEEP DISORDER
  4. VYTORIN [Concomitant]
     Indication: BLOOD CHOLESTEROL INCREASED

REACTIONS (5)
  - Dislocation of vertebra [Recovered/Resolved]
  - Hypertension [Recovered/Resolved]
  - Urinary tract infection [Not Recovered/Not Resolved]
  - Traumatic haematoma [Not Recovered/Not Resolved]
  - Fall [Recovered/Resolved]
